FAERS Safety Report 16061183 (Version 1)
Quarter: 2019Q1

REPORT INFORMATION
  Report Type: Spontaneous
  Country: US (occurrence: US)
  Receive Date: 20190312
  Receipt Date: 20190312
  Transmission Date: 20190418
  Serious: No
  Sender: FDA-Public Use
  Company Number: US-ROCHE-2173871

PATIENT
  Sex: Female
  Weight: 56.75 kg

DRUGS (1)
  1. AVASTIN [Suspect]
     Active Substance: BEVACIZUMAB
     Indication: OVARIAN CANCER
     Route: 065
     Dates: start: 20180214, end: 20180715

REACTIONS (4)
  - Hordeolum [Not Recovered/Not Resolved]
  - Epistaxis [Recovered/Resolved]
  - Meibomian gland dysfunction [Not Recovered/Not Resolved]
  - Nasal crusting [Recovered/Resolved]
